FAERS Safety Report 15115113 (Version 2)
Quarter: 2018Q3

REPORT INFORMATION
  Report Type: Spontaneous
  Country: JP (occurrence: JP)
  Receive Date: 20180706
  Receipt Date: 20180726
  Transmission Date: 20181010
  Serious: Yes (Life-Threatening, Hospitalization)
  Sender: FDA-Public Use
  Company Number: JP-ABBVIE-18K-087-2389768-00

PATIENT
  Age: 67 Year
  Sex: Female
  Weight: 45 kg

DRUGS (20)
  1. NEORAL [Suspect]
     Active Substance: CYCLOSPORINE
     Route: 048
     Dates: start: 20180314, end: 2018
  2. PREDONINE [Suspect]
     Active Substance: PREDNISOLONE
     Dosage: 10 UNKNOWN
     Route: 048
     Dates: start: 20180314
  3. PREDONINE [Suspect]
     Active Substance: PREDNISOLONE
     Dosage: 5 UNKNOWN
     Route: 048
     Dates: start: 20180418
  4. PREDONINE [Suspect]
     Active Substance: PREDNISOLONE
     Dosage: 5 UNKNOWN
     Route: 048
     Dates: start: 20180509
  5. PREDONINE [Suspect]
     Active Substance: PREDNISOLONE
     Dosage: 30 UNKNOWN
     Route: 048
     Dates: start: 20171026
  6. HUMIRA [Suspect]
     Active Substance: ADALIMUMAB
     Indication: VOGT-KOYANAGI-HARADA SYNDROME
     Route: 058
     Dates: start: 20180328, end: 20180404
  7. NEORAL [Suspect]
     Active Substance: CYCLOSPORINE
     Indication: ANTIINFLAMMATORY THERAPY
     Route: 048
     Dates: start: 20180207, end: 201802
  8. NEORAL [Suspect]
     Active Substance: CYCLOSPORINE
     Route: 048
     Dates: start: 20180418, end: 2018
  9. HUMIRA [Suspect]
     Active Substance: ADALIMUMAB
     Indication: UVEITIS
     Route: 058
     Dates: start: 20180404, end: 20180509
  10. PREDONINE [Suspect]
     Active Substance: PREDNISOLONE
     Dosage: 5 UNKNOWN
     Route: 048
     Dates: start: 20180404
  11. NEORAL [Suspect]
     Active Substance: CYCLOSPORINE
     Route: 048
     Dates: start: 20180509, end: 20180523
  12. PREDONINE [Suspect]
     Active Substance: PREDNISOLONE
     Dosage: 20 UNKNOWN
     Route: 048
     Dates: start: 20180221
  13. PREDONINE [Suspect]
     Active Substance: PREDNISOLONE
     Dosage: 40 UNKNOWN
     Route: 048
     Dates: start: 20171014
  14. PREDONINE [Suspect]
     Active Substance: PREDNISOLONE
     Dosage: 15 UNKNOWN
     Route: 048
     Dates: start: 20180228
  15. PREDONINE [Suspect]
     Active Substance: PREDNISOLONE
     Dosage: 5 UNKNOWN
     Route: 048
     Dates: start: 20180523
  16. HUMIRA [Suspect]
     Active Substance: ADALIMUMAB
     Route: 058
     Dates: start: 20180523, end: 2018
  17. NEORAL [Suspect]
     Active Substance: CYCLOSPORINE
     Route: 048
     Dates: start: 20180221, end: 201802
  18. NEORAL [Suspect]
     Active Substance: CYCLOSPORINE
     Route: 048
     Dates: start: 20180228, end: 2018
  19. PREDONINE [Suspect]
     Active Substance: PREDNISOLONE
     Dosage: 40 UNKNOWN
     Route: 048
     Dates: start: 20171230
  20. PREDONINE [Suspect]
     Active Substance: PREDNISOLONE
     Indication: ANTIINFLAMMATORY THERAPY
     Route: 048
     Dates: start: 20180207

REACTIONS (9)
  - Nausea [Unknown]
  - Aspergillus infection [Unknown]
  - Splenic abscess [Unknown]
  - Pulmonary mass [Unknown]
  - Disseminated tuberculosis [Not Recovered/Not Resolved]
  - Spleen disorder [Unknown]
  - Decreased appetite [Unknown]
  - Mycobacterium tuberculosis complex test positive [Not Recovered/Not Resolved]
  - Diffuse panbronchiolitis [Unknown]

NARRATIVE: CASE EVENT DATE: 2018
